FAERS Safety Report 5522481-2 (Version None)
Quarter: 2007Q4

REPORT INFORMATION
  Report Type: 
  Country: None (occurrence: None)
  Receive Date: 20071120
  Receipt Date: 20071113
  Transmission Date: 20080405
  Serious: Yes (Hospitalization)
  Sender: FDA-Public Use
  Company Number: US-ELI_LILLY_AND_COMPANY-US200711002886

PATIENT
  Sex: Female

DRUGS (4)
  1. HUMALOG [Suspect]
     Dosage: UNK, UNK
     Dates: start: 20041104
  2. HUMALOG [Suspect]
     Dates: start: 20071102
  3. LANTUS [Concomitant]
     Indication: DIABETES MELLITUS
     Dosage: 8 U, UNK
  4. VANCOMYCIN [Concomitant]
     Indication: CYSTITIS

REACTIONS (6)
  - CONSTIPATION [None]
  - CYSTITIS [None]
  - DIABETIC COMA [None]
  - DIARRHOEA [None]
  - HAEMATOCHEZIA [None]
  - SMALL INTESTINE ULCER [None]
